FAERS Safety Report 11057137 (Version 1)
Quarter: 2015Q2

REPORT INFORMATION
  Report Type: Spontaneous
  Country: US (occurrence: None)
  Receive Date: 20150420
  Receipt Date: 20150420
  Transmission Date: 20150821
  Serious: Yes (Other)
  Sender: FDA-Public Use
  Company Number: AEGR001145

PATIENT
  Age: 35 Year
  Sex: Male
  Weight: 109.3 kg

DRUGS (14)
  1. ATORVASTATIN [Concomitant]
     Active Substance: ATORVASTATIN
  2. OMEPRAZOLE. [Concomitant]
     Active Substance: OMEPRAZOLE
  3. TOPAMAX [Concomitant]
     Active Substance: TOPIRAMATE
  4. FLUTICASONE [Concomitant]
     Active Substance: FLUTICASONE\FLUTICASONE PROPIONATE
  5. LEVEMIR [Concomitant]
     Active Substance: INSULIN DETEMIR
  6. AMLODIPINE [Concomitant]
     Active Substance: AMLODIPINE BESYLATE
  7. CYMBALTA [Concomitant]
     Active Substance: DULOXETINE HYDROCHLORIDE
  8. IMITREX [Concomitant]
     Active Substance: SUMATRIPTAN\SUMATRIPTAN SUCCINATE
  9. CARVEDILOL. [Concomitant]
     Active Substance: CARVEDILOL
  10. JUXTAPID [Suspect]
     Active Substance: LOMITAPIDE MESYLATE
     Indication: TYPE IIA HYPERLIPIDAEMIA
     Dosage: 10
     Route: 048
     Dates: start: 20141215, end: 20150116
  11. GABAPENTIN. [Concomitant]
     Active Substance: GABAPENTIN
  12. HUMALOG [Concomitant]
     Active Substance: INSULIN LISPRO
  13. VICTOZA [Concomitant]
     Active Substance: LIRAGLUTIDE
  14. LISINOPRIL (LISINOPRIL DIHYDRATE) (UNKNOWN [Concomitant]
     Active Substance: LISINOPRIL

REACTIONS (2)
  - Hepatic enzyme abnormal [None]
  - Therapy cessation [None]

NARRATIVE: CASE EVENT DATE: 20150108
